FAERS Safety Report 16595965 (Version 1)
Quarter: 2019Q3

REPORT INFORMATION
  Report Type: Spontaneous
  Country: IT (occurrence: IT)
  Receive Date: 20190719
  Receipt Date: 20190719
  Transmission Date: 20191004
  Serious: Yes (Other)
  Sender: FDA-Public Use
  Company Number: IT-LUPIN PHARMACEUTICALS INC.-2019-04371

PATIENT
  Age: 12 Month
  Sex: Male

DRUGS (25)
  1. QUINIDINE [Suspect]
     Active Substance: QUINIDINE
     Dosage: 50 MILLIGRAM/KILOGRAM, QD
     Route: 065
  2. PHENOBARBITAL. [Suspect]
     Active Substance: PHENOBARBITAL
     Dosage: 3 MILLIGRAM/KILOGRAM, QD
     Route: 065
  3. PYRIDOXINE [Suspect]
     Active Substance: PYRIDOXINE
     Indication: SEIZURE
     Dosage: 30 MILLIGRAM/KILOGRAM, QD
     Route: 048
  4. QUINIDINE [Suspect]
     Active Substance: QUINIDINE
     Dosage: 4-5 MILLIGRAM/KILOGRAM, QD
     Route: 065
  5. QUINIDINE [Suspect]
     Active Substance: QUINIDINE
     Dosage: 60 MILLIGRAM/KILOGRAM, QD
     Route: 065
  6. QUINIDINE [Suspect]
     Active Substance: QUINIDINE
     Dosage: 35 MILLIGRAM/KILOGRAM, QD
     Route: 065
  7. LEVETIRACETAM. [Suspect]
     Active Substance: LEVETIRACETAM
     Dosage: UNK (UPTO 60 MILLIGRAM/KILOGRAM, DAILY)
     Route: 065
  8. QUINIDINE [Suspect]
     Active Substance: QUINIDINE
     Dosage: 35 MILLIGRAM/KILOGRAM, QID
     Route: 065
  9. POTASSIUM BROMIDE [Concomitant]
     Active Substance: POTASSIUM BROMIDE
     Indication: SEIZURE
     Dosage: 45 MILLIGRAM/KILOGRAM, QD
     Route: 065
  10. LEVETIRACETAM. [Suspect]
     Active Substance: LEVETIRACETAM
     Indication: SEIZURE
     Dosage: 60 MILLIGRAM/KILOGRAM, QD
     Route: 065
  11. LEVETIRACETAM. [Suspect]
     Active Substance: LEVETIRACETAM
     Dosage: 45 MILLIGRAM/KILOGRAM, QD
     Route: 065
  12. CLONAZEPAM. [Suspect]
     Active Substance: CLONAZEPAM
     Indication: SEIZURE
     Dosage: 0.2 MILLIGRAM/KILOGRAM, QD
     Route: 048
  13. QUINIDINE [Suspect]
     Active Substance: QUINIDINE
     Dosage: 50-70 MILLIGRAM/KILOGRAM, QD
     Route: 064
  14. MIDAZOLAM [Suspect]
     Active Substance: MIDAZOLAM HYDROCHLORIDE
     Dosage: UPTO 0.2 MILLIGRAM/KILOGRAM
     Route: 065
  15. CLONAZEPAM. [Suspect]
     Active Substance: CLONAZEPAM
     Dosage: UPTO 0.2 MILLIGRAM/KILOGRAM
     Route: 048
  16. QUINIDINE [Suspect]
     Active Substance: QUINIDINE
     Dosage: 50 MILLIGRAM/KILOGRAM, QID
     Route: 065
  17. QUINIDINE [Suspect]
     Active Substance: QUINIDINE
     Dosage: UNK (HALVED DOSE)
     Route: 065
  18. QUINIDINE [Suspect]
     Active Substance: QUINIDINE
     Dosage: 45 MILLIGRAM/KILOGRAM, QD
     Route: 065
  19. TOPIRAMATE. [Concomitant]
     Active Substance: TOPIRAMATE
     Indication: SEIZURE
     Dosage: 5 MILLIGRAM/KILOGRAM, QD
     Route: 065
  20. LEVETIRACETAM. [Suspect]
     Active Substance: LEVETIRACETAM
     Dosage: 100 MILLIGRAM/KILOGRAM, QD
     Route: 065
  21. PHENOBARBITAL. [Suspect]
     Active Substance: PHENOBARBITAL
     Dosage: 8 MILLIGRAM/KILOGRAM, QD
     Route: 065
  22. MIDAZOLAM [Suspect]
     Active Substance: MIDAZOLAM HYDROCHLORIDE
     Indication: SEIZURE
     Dosage: 0.2 MILLIGRAM/KILOGRAM PER HOUR
     Route: 065
  23. PHENOBARBITAL. [Suspect]
     Active Substance: PHENOBARBITAL
     Indication: SEIZURE
     Dosage: 5 MILLIGRAM/KILOGRAM, QD
     Route: 065
  24. CARBAMAZEPINE. [Suspect]
     Active Substance: CARBAMAZEPINE
     Indication: SEIZURE
     Dosage: UNK
     Route: 065
  25. QUINIDINE [Suspect]
     Active Substance: QUINIDINE
     Indication: SEIZURE
     Dosage: 2 MILLIGRAM/KILOGRAM, QID
     Route: 065

REACTIONS (6)
  - Multiple-drug resistance [Unknown]
  - Seizure [Recovering/Resolving]
  - Hypotonia [Unknown]
  - Status epilepticus [Recovering/Resolving]
  - Clonic convulsion [Recovering/Resolving]
  - Drug ineffective [Unknown]
